FAERS Safety Report 8459681-8 (Version None)
Quarter: 2012Q2

REPORT INFORMATION
  Report Type: 
  Country: None (occurrence: None)
  Receive Date: 20120615
  Receipt Date: 20120604
  Transmission Date: 20120825
  Serious: Yes (Hospitalization, Other)
  Sender: FDA-Public Use
  Company Number: 2012P1037607

PATIENT
  Age: 30 Year
  Sex: Male

DRUGS (1)
  1. AMPHETAMINE (NO PREF. NAME) [Suspect]

REACTIONS (6)
  - HALLUCINATIONS, MIXED [None]
  - DELUSION OF REFERENCE [None]
  - THOUGHT INSERTION [None]
  - DEPRESSION [None]
  - SUICIDAL IDEATION [None]
  - SUBSTANCE-INDUCED PSYCHOTIC DISORDER [None]
